FAERS Safety Report 20896272 (Version 1)
Quarter: 2022Q2

REPORT INFORMATION
  Report Type: Spontaneous
  Country: US (occurrence: None)
  Receive Date: 20220531
  Receipt Date: 20220531
  Transmission Date: 20220721
  Serious: Yes (Hospitalization)
  Sender: FDA-Public Use
  Company Number: None

PATIENT
  Age: 86 Year

DRUGS (12)
  1. ABIRATERONE [Suspect]
     Active Substance: ABIRATERONE
     Indication: Prostate cancer
     Dosage: FREQUENCY : DAILY;?
     Route: 048
     Dates: start: 20220506
  2. CASODEX [Concomitant]
  3. ELIGARD [Concomitant]
  4. FLOMAX [Concomitant]
  5. GABAPENTIN [Concomitant]
  6. LUPRON [Concomitant]
  7. PREDNISONE [Concomitant]
  8. ASPIRIN [Concomitant]
  9. TAMSULOSIN [Concomitant]
  10. TRAMADOL [Concomitant]
  11. TYLENOL [Concomitant]
  12. VITAMIN B12 [Concomitant]

REACTIONS (2)
  - Pneumothorax [None]
  - Chronic obstructive pulmonary disease [None]

NARRATIVE: CASE EVENT DATE: 20220526
